FAERS Safety Report 6824171-2 (Version None)
Quarter: 2010Q3

REPORT INFORMATION
  Report Type: 
  Country: None (occurrence: None)
  Receive Date: 20100708
  Receipt Date: 20070426
  Transmission Date: 20110219
  Serious: Yes (Other)
  Sender: FDA-Public Use
  Company Number: US-PFIZER INC-2006127121

PATIENT
  Sex: Female

DRUGS (3)
  1. CHANTIX [Suspect]
  2. NEXIUM [Concomitant]
  3. VITAMINS [Concomitant]

REACTIONS (3)
  - AGITATION [None]
  - HEART RATE INCREASED [None]
  - INSOMNIA [None]
